FAERS Safety Report 6165153-6 (Version None)
Quarter: 2009Q2

REPORT INFORMATION
  Report Type: 
  Country: None (occurrence: None)
  Receive Date: 20090423
  Receipt Date: 20090414
  Transmission Date: 20091009
  Serious: Yes (Other)
  Sender: FDA-Public Use
  Company Number: GB-ELI_LILLY_AND_COMPANY-GB200904002642

PATIENT
  Age: 56 Year
  Sex: Female
  Weight: 93 kg

DRUGS (5)
  1. BYETTA [Suspect]
     Indication: OVERWEIGHT
     Dosage: 10 UG
     Route: 058
     Dates: start: 20081001, end: 20090301
  2. CITALOPRAM HYDROBROMIDE [Concomitant]
     Indication: DEPRESSION
     Dosage: 40 MG, UNKNOWN
     Route: 048
  3. GABAPENTIN [Concomitant]
     Indication: PAIN
     Dosage: 300 MG, UNKNOWN
     Route: 048
  4. RAMIPRIL [Concomitant]
     Indication: HYPERTENSION
     Dosage: 2.5 MG, UNKNOWN
     Route: 048
  5. TRAMADOL HCL [Concomitant]
     Indication: PAIN
     Dosage: 200 MG, UNKNOWN
     Route: 048

REACTIONS (2)
  - ANGIOEDEMA [None]
  - URTICARIA [None]
